FAERS Safety Report 4522611-5 (Version None)
Quarter: 2004Q4

REPORT INFORMATION
  Report Type: 
  Country: None (occurrence: None)
  Receive Date: 20041207
  Receipt Date: 20041125
  Transmission Date: 20050328
  Serious: Yes (Hospitalization)
  Sender: FDA-Public Use
  Company Number: K200400604

PATIENT
  Age: 84 Year
  Sex: Male

DRUGS (10)
  1. ALTACE [Suspect]
     Dosage: 1.25  MG, QD, ORAL
     Route: 048
  2. DOLIPRANE (PARACETAMOL) TABLET, 1,000MG [Suspect]
     Dosage: 1,000 MG, QD, ORAL
     Route: 048
  3. FUROSEMIDE [Suspect]
     Dosage: 20 MG, BID, ORAL
     Route: 048
  4. ATHYMIL (MIANSERIN HYDROCHLORIDE) TABLET, 30MG [Suspect]
     Indication: DEPRESSION
     Dosage: 30 MG , QD, ORAL
     Route: 048
     Dates: start: 20040101
  5. SOTALEX (SOTALOL HYDROCHLORIDE) TABLET, 80 MG [Suspect]
     Dosage: 80 MG, QD, ORAL
     Route: 048
  6. DECAPETYL (TRIPTORELIN ACETATE) [Suspect]
     Indication: PROSTATE CANCER
     Dosage: 3 MG, EVERY MONTH, INTRAMUSCULAR
     Route: 030
  7. ASASANTIN (DIPYRIDAMOLE, ACETYLSALICYLIC ACID) [Concomitant]
  8. VASTAREL (TRIMETAZIDINE HYDROCHLORIDE) [Concomitant]
  9. TRINIPATCH (GLYCERYL TRINITRATE) [Concomitant]
  10. SERETIDE(SALMETEROL XINAFOATE, FLUTICASONE PROPIONATE) [Concomitant]

REACTIONS (6)
  - BLOOD FOLATE INCREASED [None]
  - BLOOD LACTATE DEHYDROGENASE INCREASED [None]
  - DUODENAL POLYP [None]
  - HAEMOLYTIC ANAEMIA [None]
  - LABORATORY TEST ABNORMAL [None]
  - VITAMIN B12 DECREASED [None]
